FAERS Safety Report 6320865-6 (Version None)
Quarter: 2009Q3

REPORT INFORMATION
  Report Type: 
  Country: None (occurrence: None)
  Receive Date: 20090822
  Receipt Date: 20081208
  Transmission Date: 20100115
  Serious: No
  Sender: FDA-Public Use
  Company Number: US-ABBOTT-08P-163-0491885-00

PATIENT
  Sex: Male
  Weight: 99.88 kg

DRUGS (4)
  1. NIASPAN [Suspect]
     Indication: BLOOD TRIGLYCERIDES
     Dates: start: 20010101
  2. NIASPAN [Suspect]
     Indication: LDL/HDL RATIO
     Dates: start: 20081205
  3. FENOFIBRATE [Concomitant]
     Indication: BLOOD TRIGLYCERIDES
     Dates: start: 20010101
  4. FENOFIBRATE [Concomitant]
     Dates: start: 20081124

REACTIONS (4)
  - BLOOD TRIGLYCERIDES INCREASED [None]
  - CHEST PAIN [None]
  - HIGH DENSITY LIPOPROTEIN DECREASED [None]
  - LOW DENSITY LIPOPROTEIN INCREASED [None]
